FAERS Safety Report 5288974-0 (Version None)
Quarter: 2007Q2

REPORT INFORMATION
  Report Type: 
  Country: None (occurrence: None)
  Receive Date: 20070405
  Receipt Date: 20070326
  Transmission Date: 20071010
  Serious: Yes (Death, Other)
  Sender: FDA-Public Use
  Company Number: US-PFIZER INC-2007015311

PATIENT
  Age: 57 Year
  Sex: Male

DRUGS (9)
  1. CHANTIX [Suspect]
  2. ALL OTHER THERAPEUTIC PRODUCTS [Suspect]
  3. NORTRIPTYLINE HCL [Concomitant]
  4. PAXIL [Concomitant]
  5. DEPAKOTE [Concomitant]
  6. KLONOPIN [Concomitant]
  7. NIASPAN [Concomitant]
  8. AGGRENOX [Concomitant]
  9. NICOTINE [Concomitant]

REACTIONS (2)
  - CEREBRAL DISORDER [None]
  - DEATH [None]
